FAERS Safety Report 14583281 (Version 1)
Quarter: 2018Q1

REPORT INFORMATION
  Report Type: Spontaneous
  Country: US (occurrence: US)
  Receive Date: 20180228
  Receipt Date: 20180228
  Transmission Date: 20180509
  Serious: No
  Sender: FDA-Public Use
  Company Number: US-TAIHO ONCOLOGY INC-EU-2018-00293

PATIENT
  Sex: Female

DRUGS (14)
  1. FERROUS SULFATE. [Concomitant]
     Active Substance: FERROUS SULFATE
     Dosage: NI
  2. TRAMADOL. [Concomitant]
     Active Substance: TRAMADOL
     Dosage: NI
  3. CALCIUM CARBONATE. [Concomitant]
     Active Substance: CALCIUM CARBONATE
     Dosage: NI
  4. GABAPENTIN. [Concomitant]
     Active Substance: GABAPENTIN
     Dosage: NI
  5. PARACETAMOL [Concomitant]
     Active Substance: ACETAMINOPHEN
     Dosage: NI
  6. LISINOPRIL. [Concomitant]
     Active Substance: LISINOPRIL
     Dosage: NI
  7. CARVEDILOL. [Concomitant]
     Active Substance: CARVEDILOL
     Dosage: NI
  8. CAPECITABINE. [Concomitant]
     Active Substance: CAPECITABINE
     Dosage: NI
  9. LIPITOR [Concomitant]
     Active Substance: ATORVASTATIN CALCIUM
     Dosage: NI
  10. ONDANSETRON [Concomitant]
     Active Substance: ONDANSETRON
     Dosage: NI
  11. TRAZODONE [Concomitant]
     Active Substance: TRAZODONE HYDROCHLORIDE
     Dosage: NI
  12. DOCUSATE SODIUM/SENNA ALEXANDRINA [Concomitant]
     Dosage: NI
  13. LONSURF [Suspect]
     Active Substance: TIPIRACIL HYDROCHLORIDE\TRIFLURIDINE
     Indication: COLON CANCER
     Route: 048
     Dates: start: 20170515
  14. OMEPRAZOLE. [Concomitant]
     Active Substance: OMEPRAZOLE
     Dosage: NI

REACTIONS (2)
  - Insomnia [Unknown]
  - Anxiety [Unknown]

NARRATIVE: CASE EVENT DATE: 2017
